FAERS Safety Report 6280710-4 (Version None)
Quarter: 2009Q3

REPORT INFORMATION
  Report Type: 
  Country: None (occurrence: None)
  Receive Date: 20090724
  Receipt Date: 20090114
  Transmission Date: 20100115
  Serious: Yes (Other)
  Sender: FDA-Public Use
  Company Number: A0757881A

PATIENT
  Age: 53 Year
  Sex: Female

DRUGS (4)
  1. AVANDIA [Suspect]
     Dosage: 8MG PER DAY
     Route: 048
     Dates: start: 20050101, end: 20081121
  2. LIPITOR [Concomitant]
  3. DIOVAN [Concomitant]
  4. FOSAMAX [Concomitant]

REACTIONS (1)
  - ANAEMIA [None]
